FAERS Safety Report 17680124 (Version 1)
Quarter: 2020Q2

REPORT INFORMATION
  Report Type: Spontaneous
  Country: US (occurrence: US)
  Receive Date: 20200416
  Receipt Date: 20200416
  Transmission Date: 20200714
  Serious: No
  Sender: FDA-Public Use
  Company Number: None

PATIENT
  Sex: Female

DRUGS (1)
  1. MAKENA [Suspect]
     Active Substance: HYDROXYPROGESTERONE CAPROATE
     Indication: PRENATAL CARE
     Dosage: ?          OTHER STRENGTH:375MG/1.1M;?
     Route: 058
     Dates: start: 20200225

REACTIONS (2)
  - Rash [None]
  - Pruritus [None]
